FAERS Safety Report 4773257-5 (Version None)
Quarter: 2005Q3

REPORT INFORMATION
  Report Type: 
  Country: None (occurrence: None)
  Receive Date: 20050916
  Receipt Date: 20050907
  Transmission Date: 20060218
  Serious: Yes (Hospitalization)
  Sender: FDA-Public Use
  Company Number: 217566

PATIENT
  Age: 65 Year
  Sex: Female
  Weight: 80 kg

DRUGS (7)
  1. AVASTIN [Suspect]
     Indication: NON-SMALL CELL LUNG CANCER
     Dosage: 1203 MG, INTRAVENOUS
     Route: 042
     Dates: start: 20050823
  2. POTASSIUM SUPPLEMENT (POTASSIUM NOS) [Concomitant]
  3. MULTIVITAMIN (MULTIVITAMINS NOS) [Concomitant]
  4. MELOXICAM (MELOXICAM) [Concomitant]
  5. ADVAIR DISKUS 100/50 [Concomitant]
  6. RALOXIFENE HCL [Concomitant]
  7. BUMETANIDE [Concomitant]

REACTIONS (3)
  - PERICARDITIS [None]
  - PLEURISY [None]
  - PULMONARY EMBOLISM [None]
